FAERS Safety Report 24587754 (Version 2)
Quarter: 2024Q4

REPORT INFORMATION
  Report Type: Report from Study
  Country: MX (occurrence: MX)
  Receive Date: 20241107
  Receipt Date: 20241119
  Transmission Date: 20250115
  Serious: Yes (Other)
  Sender: BIOVITRUM
  Company Number: MX-AstraZeneca-CH-00737457A

PATIENT
  Age: 6 Week
  Sex: Female
  Weight: 3.9 kg

DRUGS (6)
  1. PALIVIZUMAB [Suspect]
     Active Substance: PALIVIZUMAB
     Indication: Respiratory syncytial virus immunisation
     Dosage: 1 MILLILITER, QMONTH
     Route: 030
     Dates: start: 20240828, end: 20240828
  2. PALIVIZUMAB [Suspect]
     Active Substance: PALIVIZUMAB
     Dosage: 0.45 MILLILITER, QMONTH
     Route: 030
     Dates: start: 20240930, end: 20240930
  3. PALIVIZUMAB [Suspect]
     Active Substance: PALIVIZUMAB
     Dosage: 0.6 MILLILITER, QMONTH
     Route: 030
     Dates: start: 20241028
  4. VITAMINS [Concomitant]
     Active Substance: VITAMINS
     Indication: Product used for unknown indication
     Dosage: 9 DROP, QD
     Dates: start: 20240826
  5. FERROUS SULFATE [Concomitant]
     Active Substance: FERROUS SULFATE
     Indication: Product used for unknown indication
     Dosage: 6 DROP, QD
     Dates: start: 20240826
  6. PROBIOTICS NOS [Concomitant]
     Active Substance: PROBIOTICS NOS
     Indication: Product used for unknown indication
     Dosage: 9 DROP, QD
     Dates: start: 20240826

REACTIONS (5)
  - Haemoglobin decreased [Unknown]
  - Drowning [Recovered/Resolved]
  - Respiratory disorder [Recovered/Resolved]
  - Poor feeding infant [Recovered/Resolved]
  - Pyrexia [Recovered/Resolved]

NARRATIVE: CASE EVENT DATE: 20240902
